FAERS Safety Report 8349688-3 (Version None)
Quarter: 2012Q2

REPORT INFORMATION
  Report Type: 
  Country: None (occurrence: None)
  Receive Date: 20120510
  Receipt Date: 20120503
  Transmission Date: 20120825
  Serious: Yes (Other)
  Sender: FDA-Public Use
  Company Number: US-PFIZER INC-2012109900

PATIENT
  Sex: Male

DRUGS (2)
  1. CADUET [Suspect]
     Dosage: 10/ 10, 1 TABLET DAILY
  2. NEURONTIN [Suspect]
     Dosage: 300 MG, 3X/DAY

REACTIONS (12)
  - TRANSIENT ISCHAEMIC ATTACK [None]
  - MEMORY IMPAIRMENT [None]
  - MONOPLEGIA [None]
  - VISUAL ACUITY REDUCED [None]
  - DEPRESSION [None]
  - BACK DISORDER [None]
  - ARTHRITIS [None]
  - CEREBROVASCULAR ACCIDENT [None]
  - BLOOD GLUCOSE ABNORMAL [None]
  - HYPERTENSION [None]
  - BLOOD CHOLESTEROL INCREASED [None]
  - NEUROPATHY PERIPHERAL [None]
